FAERS Safety Report 21174797 (Version 1)
Quarter: 2022Q3

REPORT INFORMATION
  Report Type: 
  Country: None (occurrence: AU)
  Receive Date: 20220805
  Receipt Date: 20220805
  Transmission Date: 20221026
  Serious: Yes (Hospitalization, Other)
  Sender: FDA-Public Use
  Company Number: None

PATIENT
  Age: 40 Year
  Sex: Male

DRUGS (1)
  1. RIFAMPIN [Suspect]
     Active Substance: RIFAMPIN

REACTIONS (12)
  - Malaise [Recovered/Resolved]
  - Pyrexia [Recovered/Resolved]
  - Abdominal discomfort [Recovered/Resolved]
  - Diarrhoea [Recovered/Resolved]
  - Vomiting [Recovered/Resolved]
  - Renal tubular necrosis [Recovered/Resolved]
  - Thrombocytopenia [Recovered/Resolved]
  - Anuria [Recovered/Resolved]
  - Haematuria [Recovered/Resolved]
  - Blood urea increased [Recovered/Resolved]
  - Nausea [Recovered/Resolved]
  - Proteinuria [Recovered/Resolved]
